FAERS Safety Report 19115716 (Version 2)
Quarter: 2021Q2

REPORT INFORMATION
  Report Type: Spontaneous
  Country: US (occurrence: US)
  Receive Date: 20210409
  Receipt Date: 20210420
  Transmission Date: 20210717
  Serious: Yes (Other)
  Sender: FDA-Public Use
  Company Number: US-PFIZER INC-10777

PATIENT
  Age: 78 Year
  Sex: Female

DRUGS (4)
  1. CEFTAZIDIME. [Interacting]
     Active Substance: CEFTAZIDIME
     Indication: ENDOPHTHALMITIS
     Dosage: 2 MG PER 0.1 ML
  2. VANCOMYCIN HCL [Suspect]
     Active Substance: VANCOMYCIN HYDROCHLORIDE
     Indication: ENDOPHTHALMITIS
     Dosage: 1 MG PER 0.1 ML
  3. VANCOMYCIN HCL [Interacting]
     Active Substance: VANCOMYCIN HYDROCHLORIDE
     Dosage: 25 MG PER 0.5 ML
     Route: 057
  4. CEFTAZIDIME. [Interacting]
     Active Substance: CEFTAZIDIME
     Dosage: 100 MG PER 0.5 ML
     Route: 057

REACTIONS (4)
  - Conjunctival deposit [Recovered/Resolved]
  - Product use issue [Unknown]
  - Drug interaction [Recovered/Resolved]
  - Off label use [Unknown]
